FAERS Safety Report 21957719 (Version 14)
Quarter: 2025Q2

REPORT INFORMATION
  Report Type: Report from Study
  Country: CA (occurrence: CA)
  Receive Date: 20230206
  Receipt Date: 20250527
  Transmission Date: 20250716
  Serious: Yes (Other)
  Sender: TAKEDA
  Company Number: CA-TAKEDA-2022TUS050501

PATIENT
  Age: 67 Year
  Sex: Female

DRUGS (12)
  1. VEDOLIZUMAB [Suspect]
     Active Substance: VEDOLIZUMAB
     Indication: Crohn^s disease
  2. VEDOLIZUMAB [Suspect]
     Active Substance: VEDOLIZUMAB
     Indication: Colitis ulcerative
     Dosage: 300 MILLIGRAM, Q4WEEKS
  3. VEDOLIZUMAB [Suspect]
     Active Substance: VEDOLIZUMAB
     Dosage: 300 MILLIGRAM, Q4WEEKS
     Dates: start: 20221005
  4. VEDOLIZUMAB [Suspect]
     Active Substance: VEDOLIZUMAB
  5. VEDOLIZUMAB [Suspect]
     Active Substance: VEDOLIZUMAB
     Dosage: 300 MILLIGRAM, Q4WEEKS
  6. VEDOLIZUMAB [Suspect]
     Active Substance: VEDOLIZUMAB
     Dosage: 300 MILLIGRAM, Q4WEEKS
  7. VEDOLIZUMAB [Suspect]
     Active Substance: VEDOLIZUMAB
     Dosage: 300 MILLIGRAM, Q4WEEKS
  8. VEDOLIZUMAB [Suspect]
     Active Substance: VEDOLIZUMAB
     Dosage: 300 MILLIGRAM, Q4WEEKS
  9. SULFASALAZINE [Concomitant]
     Active Substance: SULFASALAZINE
  10. METHOTREXATE [Concomitant]
     Active Substance: METHOTREXATE
  11. PANTOPRAZOLE [Concomitant]
     Active Substance: PANTOPRAZOLE
  12. FOLIC ACID [Concomitant]
     Active Substance: FOLIC ACID

REACTIONS (23)
  - Crohn^s disease [Not Recovered/Not Resolved]
  - Lumbar spinal stenosis [Unknown]
  - Vulval cancer [Recovering/Resolving]
  - Diarrhoea [Recovered/Resolved]
  - Insomnia [Recovered/Resolved]
  - Skin exfoliation [Unknown]
  - Dry skin [Unknown]
  - Faeces soft [Unknown]
  - Frequent bowel movements [Unknown]
  - Lacrimation increased [Not Recovered/Not Resolved]
  - Eye pain [Not Recovered/Not Resolved]
  - Feeling abnormal [Not Recovered/Not Resolved]
  - Stress [Unknown]
  - Off label use [Unknown]
  - Procedural pain [Recovered/Resolved]
  - Aphthous ulcer [Unknown]
  - Abdominal pain [Recovered/Resolved]
  - Urinary tract infection [Unknown]
  - Dyspepsia [Unknown]
  - Muscle spasms [Recovered/Resolved]
  - Arthralgia [Not Recovered/Not Resolved]
  - Nausea [Recovered/Resolved]
  - Fatigue [Not Recovered/Not Resolved]

NARRATIVE: CASE EVENT DATE: 20220701
